FAERS Safety Report 15636330 (Version 1)
Quarter: 2018Q4

REPORT INFORMATION
  Report Type: Spontaneous
  Country: US (occurrence: US)
  Receive Date: 20181114
  Receipt Date: 20181114
  Transmission Date: 20190205
  Serious: No
  Sender: FDA-Public Use
  Company Number: None

PATIENT
  Age: 58 Year
  Sex: Male

DRUGS (4)
  1. METOPROLOL SUCCINATE. [Concomitant]
     Active Substance: METOPROLOL SUCCINATE
  2. BEXAROTENE CAP 75MG [Suspect]
     Active Substance: BEXAROTENE
     Route: 048
     Dates: start: 20180124
  3. SIMVASTATIN. [Concomitant]
     Active Substance: SIMVASTATIN
  4. LASIX [Concomitant]
     Active Substance: FUROSEMIDE

REACTIONS (2)
  - Joint swelling [None]
  - Swelling [None]

NARRATIVE: CASE EVENT DATE: 20181029
